FAERS Safety Report 5661169-4 (Version None)
Quarter: 2008Q1

REPORT INFORMATION
  Report Type: 
  Country: None (occurrence: None)
  Receive Date: 20080303
  Receipt Date: 20080225
  Transmission Date: 20080703
  Serious: Yes (Other)
  Sender: FDA-Public Use
  Company Number: A0712044A

PATIENT
  Sex: Male

DRUGS (1)
  1. DIPHENHYDRAMINE HYDROCHLORIDE CAP [Suspect]
     Indication: INTENTIONAL OVERDOSE
     Dosage: 16 CAPLET (S)/ SINGLE DOSE/ ORAL
     Route: 048
     Dates: start: 20080224, end: 20080224

REACTIONS (2)
  - INTENTIONAL OVERDOSE [None]
  - MALAISE [None]
